FAERS Safety Report 7493212-4 (Version None)
Quarter: 2011Q2

REPORT INFORMATION
  Report Type: 
  Country: None (occurrence: None)
  Receive Date: 20110520
  Receipt Date: 20110510
  Transmission Date: 20111010
  Serious: Yes (Hospitalization)
  Sender: FDA-Public Use
  Company Number: US-JNJFOC-20110506051

PATIENT
  Sex: Female
  Weight: 79.38 kg

DRUGS (8)
  1. FENTANYL-100 [Suspect]
     Route: 062
     Dates: start: 20101201, end: 20110101
  2. TENORMIN [Concomitant]
     Indication: BLOOD PRESSURE
     Route: 048
  3. FENTANYL-100 [Suspect]
     Indication: BACK PAIN
     Route: 062
     Dates: start: 20101201
  4. ACTOS [Concomitant]
     Indication: BLOOD GLUCOSE ABNORMAL
     Route: 048
  5. FENTANYL-100 [Suspect]
     Route: 062
     Dates: start: 20100101, end: 20101201
  6. PRILOSEC [Concomitant]
     Indication: GASTROOESOPHAGEAL REFLUX DISEASE
     Route: 048
  7. FENTANYL-100 [Suspect]
     Indication: BACK PAIN
     Route: 062
     Dates: start: 20070101
  8. LIPITOR [Concomitant]
     Indication: BLOOD CHOLESTEROL
     Route: 048

REACTIONS (6)
  - SPINAL FRACTURE [None]
  - PRODUCT QUALITY ISSUE [None]
  - NEURALGIA [None]
  - BODY HEIGHT DECREASED [None]
  - DRUG EFFECT DECREASED [None]
  - FLUID RETENTION [None]
